FAERS Safety Report 12096940 (Version 1)
Quarter: 2016Q1

REPORT INFORMATION
  Report Type: Spontaneous
  Country: US (occurrence: US)
  Receive Date: 20160221
  Receipt Date: 20160221
  Transmission Date: 20160526
  Serious: Yes (Other)
  Sender: FDA-Public Use
  Company Number: US-SHIRE-US201601540

PATIENT
  Sex: Male
  Weight: 67.57 kg

DRUGS (2)
  1. ADDERALL XR [Suspect]
     Active Substance: AMPHETAMINE ASPARTATE\AMPHETAMINE SULFATE\DEXTROAMPHETAMINE SACCHARATE\DEXTROAMPHETAMINE SULFATE
     Indication: ATTENTION DEFICIT/HYPERACTIVITY DISORDER
     Dosage: 30 MG, 1X/DAY:QD
     Route: 048
  2. ADDERALL XR [Suspect]
     Active Substance: AMPHETAMINE ASPARTATE\AMPHETAMINE SULFATE\DEXTROAMPHETAMINE SACCHARATE\DEXTROAMPHETAMINE SULFATE
     Dosage: 50 MG, 1X/DAY:QD (IN THE MORNING
     Route: 048

REACTIONS (5)
  - Mood altered [Unknown]
  - Adverse drug reaction [Unknown]
  - Disturbance in social behaviour [Unknown]
  - Overdose [Recovered/Resolved]
  - Aggression [Recovered/Resolved]
